FAERS Safety Report 4516172-4 (Version None)
Quarter: 2004Q4

REPORT INFORMATION
  Report Type: 
  Country: None (occurrence: None)
  Receive Date: 20041129
  Receipt Date: 20041118
  Transmission Date: 20050328
  Serious: Yes (Death)
  Sender: FDA-Public Use
  Company Number: 2004-11-1063

PATIENT
  Sex: Female

DRUGS (2)
  1. TEMODAR [Suspect]
     Dosage: 75MG/M2 QD ORAL
     Route: 048
  2. RADIATION THERAPY [Suspect]
     Dosage: X-RAY THERAPY

REACTIONS (1)
  - THROMBOCYTOPENIA [None]
